FAERS Safety Report 14596881 (Version 5)
Quarter: 2018Q3

REPORT INFORMATION
  Report Type: Spontaneous
  Country: PL (occurrence: PL)
  Receive Date: 20180304
  Receipt Date: 20180725
  Transmission Date: 20181010
  Serious: Yes (Other)
  Sender: FDA-Public Use
  Company Number: PL-AXELLIA-001422

PATIENT
  Age: 73 Year
  Sex: Female

DRUGS (8)
  1. RUXOLITINIB PHOSPHATE [Concomitant]
     Active Substance: RUXOLITINIB PHOSPHATE
     Dosage: 30 MG, QD
     Dates: start: 201710, end: 201712
  2. RUXOLITINIB PHOSPHATE [Concomitant]
     Active Substance: RUXOLITINIB PHOSPHATE
     Dosage: 10 MG, QD
     Dates: start: 201709
  3. OSELTAMIVIR/OSELTAMIVIR PHOSPHATE [Suspect]
     Active Substance: OSELTAMIVIR PHOSPHATE
     Indication: PRODUCT USED FOR UNKNOWN INDICATION
     Dates: start: 201601
  4. VORICONAZOLE. [Suspect]
     Active Substance: VORICONAZOLE
     Indication: PRODUCT USED FOR UNKNOWN INDICATION
     Route: 065
     Dates: start: 201601
  5. ACICLOVIR [Concomitant]
     Active Substance: ACYCLOVIR
     Indication: PRODUCT USED FOR UNKNOWN INDICATION
     Route: 065
     Dates: start: 201709
  6. ANIDULAFUNGIN [Suspect]
     Active Substance: ANIDULAFUNGIN
     Indication: PRODUCT USED FOR UNKNOWN INDICATION
     Dates: start: 201601
  7. SULFAMETHOXAZOLE/TRIMETHOPRIM [Suspect]
     Active Substance: SULFAMETHOXAZOLE\TRIMETHOPRIM
     Indication: PRODUCT USED FOR UNKNOWN INDICATION
     Dates: start: 201702
  8. RUXOLITINIB [Concomitant]
     Active Substance: RUXOLITINIB
     Dosage: ALSO RECEIVED AT 10 MG DAILY ON SEP?2017
     Dates: start: 201705

REACTIONS (12)
  - Concomitant disease progression [Unknown]
  - Laboratory test abnormal [Unknown]
  - Splenomegaly [Unknown]
  - Hypogammaglobulinaemia [Unknown]
  - Febrile neutropenia [Unknown]
  - Bronchitis [Unknown]
  - Cachexia [Unknown]
  - Oral herpes [Unknown]
  - Primary myelofibrosis [Unknown]
  - Pneumonia [Unknown]
  - General physical health deterioration [Unknown]
  - Pancytopenia [Unknown]

NARRATIVE: CASE EVENT DATE: 201612
